FAERS Safety Report 8103252-X (Version None)
Quarter: 2012Q1

REPORT INFORMATION
  Report Type: 
  Country: None (occurrence: None)
  Receive Date: 20120201
  Receipt Date: 20120123
  Transmission Date: 20120608
  Serious: Yes (Hospitalization)
  Sender: FDA-Public Use
  Company Number: DE-AMGEN-DEUCT2011054886

PATIENT
  Age: 41 Year
  Sex: Female
  Weight: 92 kg

DRUGS (6)
  1. METHOTREXATE [Concomitant]
     Indication: RHEUMATOID ARTHRITIS
     Dosage: 15 MG, WEEKLY
     Dates: start: 20031106
  2. PREDNISOLONE [Concomitant]
     Indication: RHEUMATOID ARTHRITIS
     Dosage: 5 MG, 1X/DAY
     Route: 048
     Dates: start: 20040801
  3. ETANERCEPT [Suspect]
     Dosage: 50 MG, EVERY 14 DAYS
     Dates: start: 20110802
  4. ETANERCEPT [Suspect]
     Indication: RHEUMATOID ARTHRITIS
     Dosage: 50 MG, QWK
     Route: 058
     Dates: start: 20101115, end: 20110323
  5. METHOTREXATE [Concomitant]
     Dosage: 7.5 MG, QD
     Route: 048
     Dates: start: 20111104
  6. ARAVA [Concomitant]
     Indication: RHEUMATOID ARTHRITIS
     Dosage: 20 MG, 1X/DAY
     Route: 048
     Dates: start: 20040601, end: 20110323

REACTIONS (1)
  - DEVICE COMPONENT ISSUE [None]
